FAERS Safety Report 7014185-4 (Version None)
Quarter: 2010Q3

REPORT INFORMATION
  Report Type: 
  Country: None (occurrence: None)
  Receive Date: 20100927
  Receipt Date: 20100322
  Transmission Date: 20110219
  Serious: Yes (Hospitalization)
  Sender: FDA-Public Use
  Company Number: US-BAYER-200942893NA

PATIENT
  Age: 33 Year
  Sex: Female
  Weight: 84 kg

DRUGS (6)
  1. YAZ [Suspect]
     Indication: CONTRACEPTION
     Dates: start: 20080109, end: 20080228
  2. AZITHROMYCIN [Concomitant]
     Dates: start: 20080207, end: 20080214
  3. CITALOPRAM HYDROBROMIDE [Concomitant]
     Dates: start: 20080128
  4. IBUPROFEN [Concomitant]
     Dates: start: 20080219, end: 20080228
  5. OXYCOD [Concomitant]
     Dosage: 15-325 MG
     Dates: start: 20080219
  6. CELEXA [Concomitant]

REACTIONS (3)
  - DEEP VEIN THROMBOSIS [None]
  - PLEURISY [None]
  - PULMONARY EMBOLISM [None]
